FAERS Safety Report 5596358-0 (Version None)
Quarter: 2008Q1

REPORT INFORMATION
  Report Type: 
  Country: None (occurrence: None)
  Receive Date: 20080118
  Receipt Date: 20080111
  Transmission Date: 20080703
  Serious: Yes (Other)
  Sender: FDA-Public Use
  Company Number: US-PFIZER INC-2008003891

PATIENT

DRUGS (1)
  1. SUTENT [Suspect]

REACTIONS (2)
  - DRUG TOXICITY [None]
  - IDIOPATHIC THROMBOCYTOPENIC PURPURA [None]
